FAERS Safety Report 9554464 (Version 2)
Quarter: 2013Q4

REPORT INFORMATION
  Report Type: Report from Study
  Country: FR (occurrence: FR)
  Receive Date: 20130925
  Receipt Date: 20131217
  Transmission Date: 20140711
  Serious: Yes (Hospitalization)
  Sender: FDA-Public Use
  Company Number: FR-CELGENEUS-056-C4047-13092356

PATIENT
  Age: 67 Year
  Sex: Male
  Weight: 66 kg

DRUGS (11)
  1. CC-4047 [Suspect]
     Indication: PLASMA CELL MYELOMA
     Dosage: 4 MILLIGRAM
     Route: 048
     Dates: start: 20121108, end: 20130619
  2. PREVISCAN [Concomitant]
     Indication: THROMBOSIS PROPHYLAXIS
     Dosage: 3/4 TABLET
     Route: 048
     Dates: start: 2005
  3. ZOMETA [Concomitant]
     Indication: PRODUCT USED FOR UNKNOWN INDICATION
     Route: 065
     Dates: start: 2012
  4. SKENAN [Concomitant]
     Indication: PRODUCT USED FOR UNKNOWN INDICATION
     Dosage: 20 MILLIGRAM
     Route: 065
  5. ACTISKENAN [Concomitant]
     Indication: PRODUCT USED FOR UNKNOWN INDICATION
     Route: 065
  6. DUROGESIC [Concomitant]
     Indication: PRODUCT USED FOR UNKNOWN INDICATION
     Route: 065
  7. ARANESP [Concomitant]
     Indication: PRODUCT USED FOR UNKNOWN INDICATION
     Route: 065
  8. FORLAX [Concomitant]
     Indication: PRODUCT USED FOR UNKNOWN INDICATION
     Route: 065
  9. DEXAMETHASONE [Concomitant]
     Indication: PLASMA CELL MYELOMA
     Route: 065
     Dates: start: 2004
  10. DEXAMETHASONE [Concomitant]
     Route: 065
     Dates: start: 2006
  11. DEXAMETHASONE [Concomitant]
     Route: 065
     Dates: start: 2012

REACTIONS (4)
  - Septic shock [Recovered/Resolved]
  - Renal failure acute [Recovered/Resolved with Sequelae]
  - Plasma cell myeloma [Not Recovered/Not Resolved]
  - Candida sepsis [Recovered/Resolved with Sequelae]
